FAERS Safety Report 9353688 (Version 1)
Quarter: 2013Q2

REPORT INFORMATION
  Report Type: Spontaneous
  Country: US (occurrence: None)
  Receive Date: 20130617
  Receipt Date: 20130617
  Transmission Date: 20140414
  Serious: No
  Sender: FDA-Public Use
  Company Number: None

PATIENT
  Age: 66 Year
  Sex: Female

DRUGS (1)
  1. NOVOLOG [Suspect]
     Indication: DIABETES MELLITUS
     Dosage: 45 UNITS DAILY SQ
     Route: 058
     Dates: start: 20120905, end: 20121205

REACTIONS (2)
  - Blood glucose increased [None]
  - Blood glucose abnormal [None]
